FAERS Safety Report 8876535 (Version 1)
Quarter: 2012Q4

REPORT INFORMATION
  Report Type: 
  Country: US (occurrence: US)
  Receive Date: 20121030
  Receipt Date: 20121030
  Transmission Date: 20130627
  Serious: Yes (Other)
  Sender: FDA-Public Use
  Company Number: US-BAXTER-2012BAX020622

PATIENT
  Sex: Female

DRUGS (1)
  1. SEVOFLURANE [Suspect]
     Indication: KNEE ARTHROPLASTY
     Route: 055

REACTIONS (1)
  - Unwanted awareness during anaesthesia [Recovered/Resolved]
